FAERS Safety Report 16914112 (Version 6)
Quarter: 2020Q1

REPORT INFORMATION
  Report Type: Spontaneous
  Country: US (occurrence: US)
  Receive Date: 20191014
  Receipt Date: 20200109
  Transmission Date: 20200409
  Serious: No
  Sender: FDA-Public Use
  Company Number: US-PFIZER INC-2019441745

PATIENT
  Age: 79 Year
  Sex: Female
  Weight: 100 kg

DRUGS (4)
  1. LYRICA [Suspect]
     Active Substance: PREGABALIN
     Dosage: 1 DF, ALTERNATE DAY
     Dates: start: 201909, end: 2019
  2. LYRICA [Suspect]
     Active Substance: PREGABALIN
     Dosage: 50 MG, 2X/DAY
     Dates: start: 2012, end: 201910
  3. LYRICA [Suspect]
     Active Substance: PREGABALIN
     Indication: PAIN IN EXTREMITY
     Dosage: UNK
  4. LYRICA [Suspect]
     Active Substance: PREGABALIN
     Dosage: 50 MG, 2X/DAY
     Route: 048
     Dates: start: 2019

REACTIONS (9)
  - Memory impairment [Not Recovered/Not Resolved]
  - Malaise [Not Recovered/Not Resolved]
  - Intentional product use issue [Unknown]
  - Dyskinesia [Unknown]
  - Arthralgia [Unknown]
  - Sensitivity to weather change [Unknown]
  - Off label use [Unknown]
  - Joint stiffness [Unknown]
  - Product use in unapproved indication [Unknown]

NARRATIVE: CASE EVENT DATE: 201909
